FAERS Safety Report 12217416 (Version 1)
Quarter: 2016Q1

REPORT INFORMATION
  Report Type: Spontaneous
  Country: US (occurrence: None)
  Receive Date: 20160328
  Receipt Date: 20160328
  Transmission Date: 20160526
  Serious: Yes (Hospitalization, Disabling)
  Sender: FDA-Public Use
  Company Number: None

PATIENT
  Age: 82 Year
  Sex: Male
  Weight: 63.6 kg

DRUGS (1)
  1. APIXABAN [Suspect]
     Active Substance: APIXABAN
     Indication: ATRIAL FIBRILLATION
     Route: 048
     Dates: start: 20120325, end: 20160322

REACTIONS (4)
  - Haematuria [None]
  - Cerebrovascular accident [None]
  - Therapy cessation [None]
  - Urinary tract infection [None]

NARRATIVE: CASE EVENT DATE: 20160325
